FAERS Safety Report 4383274-5 (Version None)
Quarter: 2004Q2

REPORT INFORMATION
  Report Type: 
  Country: None (occurrence: None)
  Receive Date: 20040623
  Receipt Date: 20040611
  Transmission Date: 20050107
  Serious: Yes (Disabling)
  Sender: FDA-Public Use
  Company Number: JP-BRISTOL-MYERS SQUIBB COMPANY-12613279

PATIENT
  Age: 70 Year
  Sex: Male

DRUGS (1)
  1. MAXIPIME [Suspect]
     Indication: BRONCHOPNEUMONIA
     Route: 042
     Dates: start: 20040529, end: 20040531

REACTIONS (1)
  - HYPOGLYCAEMIA [None]
